FAERS Safety Report 15236666 (Version 2)
Quarter: 2018Q3

REPORT INFORMATION
  Report Type: Spontaneous
  Country: US (occurrence: US)
  Receive Date: 20180803
  Receipt Date: 20180823
  Transmission Date: 20181010
  Serious: No
  Sender: FDA-Public Use
  Company Number: US-PFIZER INC-2018304434

PATIENT
  Age: 54 Year
  Sex: Female

DRUGS (3)
  1. DUAVEE [Suspect]
     Active Substance: BAZEDOXIFENE ACETATE\ESTROGENS, CONJUGATED
     Indication: BONE LOSS
     Dosage: UNK UNK, 1X/DAY (OHS)
     Dates: start: 201704, end: 201804
  2. DUAVEE [Suspect]
     Active Substance: BAZEDOXIFENE ACETATE\ESTROGENS, CONJUGATED
     Indication: OSTEOPOROSIS
  3. LEVOTHYROXINE. [Concomitant]
     Active Substance: LEVOTHYROXINE

REACTIONS (8)
  - Fatigue [Recovered/Resolved]
  - Headache [Recovered/Resolved]
  - Pollakiuria [Not Recovered/Not Resolved]
  - Weight increased [Recovered/Resolved]
  - Myalgia [Recovered/Resolved]
  - Thyroid function test abnormal [Unknown]
  - Muscle spasms [Not Recovered/Not Resolved]
  - Amnesia [Recovered/Resolved]

NARRATIVE: CASE EVENT DATE: 201704
